FAERS Safety Report 9185996 (Version 1)
Quarter: 2013Q1

REPORT INFORMATION
  Report Type: Spontaneous
  Country: US (occurrence: None)
  Receive Date: 20120628
  Receipt Date: 20120628
  Transmission Date: 20140127
  Serious: Yes (Other)
  Sender: FDA-Public Use
  Company Number: PHEH2012US005056

PATIENT
  Age: 66 Year
  Sex: Female
  Weight: 191 kg

DRUGS (8)
  1. RECLAST [Suspect]
     Indication: OSTEOPOROSIS
     Dates: start: 20110610
  2. CALCIUM (CALCIUM) [Concomitant]
  3. VITAMIN D3 (COLECALCIFEROL) [Concomitant]
  4. ACTOS (PIOGLITAZONE) [Concomitant]
  5. CRISTOR [Concomitant]
  6. LEVOTHYROXINE (LEVOTHYROXINE) [Concomitant]
  7. LISINOPRIL (LISINOPRIL) [Concomitant]
  8. ACE INHIBITORS (NO INGREDIENTS/SUBSTANCES) [Concomitant]

REACTIONS (12)
  - Renal failure [None]
  - Blood creatine phosphokinase decreased [None]
  - Myalgia [None]
  - Headache [None]
  - Arthralgia [None]
  - Blood creatinine increased [None]
  - Blood urea increased [None]
  - Chromaturia [None]
  - Glomerular filtration rate decreased [None]
  - Flank pain [None]
  - Nausea [None]
  - Vomiting [None]
